FAERS Safety Report 5306125-0 (Version None)
Quarter: 2007Q2

REPORT INFORMATION
  Report Type: 
  Country: None (occurrence: None)
  Receive Date: 20070424
  Receipt Date: 20070423
  Transmission Date: 20071010
  Serious: Yes (Death, Other)
  Sender: FDA-Public Use
  Company Number: JP-BRISTOL-MYERS SQUIBB COMPANY-13722467

PATIENT
  Age: 77 Year
  Sex: Male

DRUGS (4)
  1. VEPESID [Suspect]
     Indication: PROSTATE CANCER
     Route: 048
     Dates: start: 19980928, end: 20030910
  2. ESTRACYT [Suspect]
     Indication: PROSTATE CANCER
     Route: 048
     Dates: start: 19980928, end: 20030910
  3. SELBEX [Concomitant]
     Route: 048
     Dates: start: 19980928, end: 20030910
  4. BUP-4 [Concomitant]
     Route: 048
     Dates: start: 19980910, end: 20030910

REACTIONS (2)
  - LYMPHOMA [None]
  - MALIGNANT NEOPLASM PROGRESSION [None]
